FAERS Safety Report 12576237 (Version 4)
Quarter: 2016Q3

REPORT INFORMATION
  Report Type: Spontaneous
  Country: FR (occurrence: FR)
  Receive Date: 20160720
  Receipt Date: 20160802
  Transmission Date: 20161109
  Serious: Yes (Hospitalization)
  Sender: FDA-Public Use
  Company Number: FR-B.I. PHARMACEUTICALS,INC./RIDGEFIELD-2016-BI-46876FF

PATIENT
  Age: 57 Year
  Sex: Male

DRUGS (1)
  1. PRADAXA [Suspect]
     Active Substance: DABIGATRAN ETEXILATE MESYLATE
     Indication: ATRIAL FIBRILLATION
     Dosage: 300 MG
     Route: 048
     Dates: end: 20160621

REACTIONS (8)
  - Colitis ischaemic [Unknown]
  - Rib fracture [Unknown]
  - Emphysema [Recovered/Resolved]
  - Liver disorder [Unknown]
  - Peritonitis [Unknown]
  - Small intestinal obstruction [Unknown]
  - Haemorrhage [Recovered/Resolved]
  - Fall [Unknown]

NARRATIVE: CASE EVENT DATE: 20160613
